FAERS Safety Report 6809789-5 (Version None)
Quarter: 2010Q2

REPORT INFORMATION
  Report Type: 
  Country: None (occurrence: None)
  Receive Date: 20100630
  Receipt Date: 20100622
  Transmission Date: 20101027
  Serious: Yes (Hospitalization, Disabling)
  Sender: FDA-Public Use
  Company Number: DE-BAYER-201030028GPV

PATIENT
  Age: 62 Year
  Sex: Male

DRUGS (1)
  1. AVELOX [Suspect]
     Dates: start: 20100519

REACTIONS (2)
  - DIABETIC FOOT [None]
  - GANGRENE [None]
